FAERS Safety Report 7812477-X (Version None)
Quarter: 2011Q4

REPORT INFORMATION
  Report Type: 
  Country: None (occurrence: None)
  Receive Date: 20111013
  Receipt Date: 20111007
  Transmission Date: 20120403
  Serious: Yes (Hospitalization, Other)
  Sender: FDA-Public Use
  Company Number: US-MERCK-1103USA00266

PATIENT
  Age: 60 Year
  Sex: Female
  Weight: 65 kg

DRUGS (5)
  1. ALENDRONATE SODIUM [Suspect]
     Indication: OSTEOPENIA
     Route: 048
     Dates: start: 20080701, end: 20090801
  2. FOSAMAX [Suspect]
     Indication: OSTEOPENIA
     Route: 048
     Dates: start: 20000701, end: 20001201
  3. VITAMIN D (UNSPECIFIED) [Concomitant]
     Route: 065
  4. FOSAMAX [Suspect]
     Route: 048
     Dates: start: 20001201, end: 20080701
  5. CALCIUM (UNSPECIFIED) [Concomitant]
     Route: 065

REACTIONS (17)
  - TENDONITIS [None]
  - BLOOD HOMOCYSTEINE INCREASED [None]
  - BLOOD TRIGLYCERIDES INCREASED [None]
  - FOOT FRACTURE [None]
  - FEMUR FRACTURE [None]
  - TOOTH FRACTURE [None]
  - TOOTH DISORDER [None]
  - DENTAL FISTULA [None]
  - FALL [None]
  - THERMAL BURN [None]
  - LYME DISEASE [None]
  - BLOOD GLUCOSE INCREASED [None]
  - HAEMORRHOIDS [None]
  - CERUMEN IMPACTION [None]
  - GINGIVAL BLEEDING [None]
  - MUSCULOSKELETAL PAIN [None]
  - HYPERCHOLESTEROLAEMIA [None]
